FAERS Safety Report 13504061 (Version 3)
Quarter: 2017Q2

REPORT INFORMATION
  Report Type: Spontaneous
  Country: JP (occurrence: JP)
  Receive Date: 20170502
  Receipt Date: 20170616
  Transmission Date: 20170830
  Serious: Yes (Hospitalization, Other)
  Sender: FDA-Public Use
  Company Number: JP-JNJFOC-20170430619

PATIENT
  Age: 86 Year
  Sex: Male
  Weight: 35 kg

DRUGS (4)
  1. XARELTO [Suspect]
     Active Substance: RIVAROXABAN
     Indication: ATRIAL FIBRILLATION
     Route: 048
     Dates: start: 20160304, end: 20170412
  2. SPIRONOLACTONE. [Concomitant]
     Active Substance: SPIRONOLACTONE
     Route: 048
     Dates: start: 20160301
  3. DIART [Concomitant]
     Active Substance: AZOSEMIDE
     Route: 048
     Dates: start: 20170418
  4. FERROUS SODIUM CITRATE [Concomitant]
     Active Substance: SODIUM FERROUS CITRATE
     Route: 048
     Dates: start: 20160305

REACTIONS (2)
  - Carotid artery occlusion [Recovered/Resolved with Sequelae]
  - Ileus [Recovering/Resolving]

NARRATIVE: CASE EVENT DATE: 20170413
